FAERS Safety Report 5866708-6 (Version None)
Quarter: 2008Q3

REPORT INFORMATION
  Report Type: 
  Country: None (occurrence: None)
  Receive Date: 20080828
  Receipt Date: 20080828
  Transmission Date: 20090109
  Serious: No
  Sender: FDA-Public Use
  Company Number: None

PATIENT
  Age: 69 Year
  Sex: Male
  Weight: 97.5234 kg

DRUGS (1)
  1. LEVITRA [Suspect]
     Indication: ERECTILE DYSFUNCTION
     Dosage: 1 TABLET 1 PER WEEK PO
     Route: 048
     Dates: start: 20040106, end: 20080511

REACTIONS (1)
  - OPTIC ISCHAEMIC NEUROPATHY [None]
